FAERS Safety Report 20899129 (Version 1)
Quarter: 2022Q2

REPORT INFORMATION
  Report Type: Spontaneous
  Country: ES (occurrence: ES)
  Receive Date: 20220601
  Receipt Date: 20220601
  Transmission Date: 20220721
  Serious: Yes (Other)
  Sender: FDA-Public Use
  Company Number: None

PATIENT
  Age: 69 Year
  Sex: Female
  Weight: 55.7 kg

DRUGS (11)
  1. XOLAIR [Suspect]
     Active Substance: OMALIZUMAB
     Indication: Urticaria chronic
     Dosage: 1 DOSAGE FORM, EVERY 8 WEEKS (1 PRE-FILLED SYRINGE OF 1 ML, 150-300MG EVERY 8 WEEKS)
     Route: 058
     Dates: start: 201906
  2. CALCIFEDIOL [Concomitant]
     Active Substance: CALCIFEDIOL
     Indication: Product used for unknown indication
     Dosage: UNK (0.266 MG ORAL SOLUTION, 10 DRINKABLE AMPOULES OF 1.5 ML)
     Route: 065
     Dates: start: 2016
  3. BILASTINE [Concomitant]
     Active Substance: BILASTINE
     Indication: Product used for unknown indication
     Dosage: 20 MG, Q12H
     Route: 065
     Dates: start: 2018
  4. ATROVENT [Concomitant]
     Active Substance: IPRATROPIUM BROMIDE
     Indication: Product used for unknown indication
     Dosage: 2 DOSAGE FORM, Q8H (20 MICROGRAMS PRESSURED INHALATION SOLUTION, 1 INHALER OF 200 DOSES)
     Route: 065
     Dates: start: 2016
  5. PLAVIX [Concomitant]
     Active Substance: CLOPIDOGREL BISULFATE
     Indication: Product used for unknown indication
     Dosage: 1 DOSAGE FORM, Q24H (28 TABLETS)
     Route: 065
     Dates: start: 2011
  6. GABAPENTIN [Concomitant]
     Active Substance: GABAPENTIN
     Indication: Product used for unknown indication
     Dosage: 1 DOSAGE FORM, Q12H
     Route: 065
     Dates: start: 2014
  7. LORAZEPAM [Concomitant]
     Active Substance: LORAZEPAM
     Indication: Product used for unknown indication
     Dosage: 0.5 MG, Q12H (50 TABLETS)
     Route: 065
     Dates: start: 2013
  8. ESCITALOPRAM [Concomitant]
     Active Substance: ESCITALOPRAM OXALATE
     Indication: Product used for unknown indication
     Dosage: 1 DOSAGE FORM, Q24H (28 TABLETS)
     Route: 065
     Dates: start: 2014
  9. TRAZODONE HYDROCHLORIDE [Concomitant]
     Active Substance: TRAZODONE HYDROCHLORIDE
     Indication: Product used for unknown indication
     Dosage: 150 MG, Q24H (30 TABLETS)
     Route: 065
     Dates: start: 2011
  10. NEXIUM [Concomitant]
     Active Substance: ESOMEPRAZOLE MAGNESIUM
     Indication: Product used for unknown indication
     Dosage: 1 DOSAGE FORM, Q24H (28 TABLETS)
     Route: 065
     Dates: start: 2008
  11. EFFERALGAN [Concomitant]
     Active Substance: ACETAMINOPHEN
     Indication: Product used for unknown indication
     Dosage: UNK (40 TABLETS)
     Route: 065
     Dates: start: 2006

REACTIONS (1)
  - Hirsutism [Unknown]

NARRATIVE: CASE EVENT DATE: 20190701
